FAERS Safety Report 6327948-5 (Version None)
Quarter: 2009Q3

REPORT INFORMATION
  Report Type: 
  Country: None (occurrence: None)
  Receive Date: 20090825
  Receipt Date: 20090422
  Transmission Date: 20100115
  Serious: No
  Sender: FDA-Public Use
  Company Number: US-ABBOTT-08P-163-0454261-00

PATIENT
  Sex: Female
  Weight: 58.112 kg

DRUGS (4)
  1. SYNTHROID [Suspect]
     Indication: HYPOTHYROIDISM
     Dates: start: 20080528, end: 20080528
  2. SYNTHROID [Suspect]
     Dates: start: 20080529
  3. CYTOMEL [Suspect]
     Indication: DRUG USE FOR UNKNOWN INDICATION
  4. BENADRYL [Concomitant]
     Indication: DRUG USE FOR UNKNOWN INDICATION
     Route: 048
     Dates: start: 20080604

REACTIONS (11)
  - ARTHRALGIA [None]
  - BLOOD PRESSURE FLUCTUATION [None]
  - BURNING SENSATION [None]
  - CHEST DISCOMFORT [None]
  - DIZZINESS [None]
  - DRY MOUTH [None]
  - FLUSHING [None]
  - GAIT DISTURBANCE [None]
  - HYPERSENSITIVITY [None]
  - MUSCLE SPASMS [None]
  - PARAESTHESIA [None]
